FAERS Safety Report 7235493-8 (Version None)
Quarter: 2011Q1

REPORT INFORMATION
  Report Type: 
  Country: None (occurrence: None)
  Receive Date: 20110120
  Receipt Date: 20110113
  Transmission Date: 20110831
  Serious: Yes (Other)
  Sender: FDA-Public Use
  Company Number: US-AMGEN-QUU434068

PATIENT

DRUGS (2)
  1. ENBREL [Suspect]
     Dates: start: 20100601
  2. ENBREL [Suspect]
     Indication: RHEUMATOID ARTHRITIS
     Dosage: 50 MG, QWK
     Route: 058
     Dates: start: 20100601, end: 20100801

REACTIONS (7)
  - SINUSITIS [None]
  - INJECTION SITE ERYTHEMA [None]
  - DEAFNESS NEUROSENSORY [None]
  - NASAL CONGESTION [None]
  - INJECTION SITE WARMTH [None]
  - OTITIS EXTERNA [None]
  - EAR INFECTION [None]
